FAERS Safety Report 22365226 (Version 1)
Quarter: 2023Q2

REPORT INFORMATION
  Report Type: Spontaneous
  Country: US (occurrence: US)
  Receive Date: 20230525
  Receipt Date: 20230525
  Transmission Date: 20230721
  Serious: No
  Sender: FDA-Public Use
  Company Number: US-UCBSA-2023005628

PATIENT
  Sex: Male

DRUGS (1)
  1. CIMZIA [Suspect]
     Active Substance: CERTOLIZUMAB PEGOL
     Indication: Rheumatoid arthritis
     Dosage: 200 MILLIGRAM, EV 2 WEEKS(QOW)
     Route: 058
     Dates: start: 202210

REACTIONS (6)
  - Pruritus genital [Unknown]
  - Penile burning sensation [Unknown]
  - Muscular weakness [Unknown]
  - Palpitations [Unknown]
  - Sinus congestion [Unknown]
  - Chest discomfort [Unknown]
